FAERS Safety Report 24593172 (Version 1)
Quarter: 2024Q4

REPORT INFORMATION
  Report Type: Spontaneous
  Country: US (occurrence: None)
  Receive Date: 20241107
  Receipt Date: 20241107
  Transmission Date: 20250114
  Serious: Yes (Death, Life-Threatening)
  Sender: Public
  Company Number: None

PATIENT
  Age: 69 Year
  Sex: Male

DRUGS (1)
  1. IOHEXOL [Suspect]
     Active Substance: IOHEXOL
     Indication: Angiogram

REACTIONS (6)
  - Paraesthesia [None]
  - Paraesthesia [None]
  - Fatigue [None]
  - Dyspnoea [None]
  - Contrast media reaction [None]
  - Distributive shock [None]

NARRATIVE: CASE EVENT DATE: 20240724
